FAERS Safety Report 19677551 (Version 3)
Quarter: 2024Q2

REPORT INFORMATION
  Report Type: Spontaneous
  Country: US (occurrence: US)
  Receive Date: 20210810
  Receipt Date: 20240623
  Transmission Date: 20240715
  Serious: No
  Sender: FDA-Public Use
  Company Number: US-GLAXOSMITHKLINE-US2021AMR165411

PATIENT
  Sex: Female

DRUGS (3)
  1. ZEJULA [Suspect]
     Active Substance: NIRAPARIB
     Indication: Malignant peritoneal neoplasm
     Dosage: 200 MG, QD
     Dates: start: 20201010
  2. ZEJULA [Suspect]
     Active Substance: NIRAPARIB
     Dosage: 200MG, QD
     Route: 048
  3. ZEJULA [Suspect]
     Active Substance: NIRAPARIB
     Indication: Malignant peritoneal neoplasm
     Dosage: 200 MG, QD
     Route: 048

REACTIONS (8)
  - Night sweats [Recovered/Resolved]
  - Crying [Recovered/Resolved]
  - Hot flush [Recovered/Resolved]
  - Affect lability [Recovered/Resolved]
  - Taste disorder [Not Recovered/Not Resolved]
  - Sacral pain [Not Recovered/Not Resolved]
  - Tremor [Not Recovered/Not Resolved]
  - Off label use [Unknown]
